FAERS Safety Report 6720029-8 (Version None)
Quarter: 2010Q2

REPORT INFORMATION
  Report Type: 
  Country: None (occurrence: None)
  Receive Date: 20100507
  Receipt Date: 20100427
  Transmission Date: 20101027
  Serious: Yes (Life-Threatening)
  Sender: FDA-Public Use
  Company Number: APP201000307

PATIENT
  Age: 68 Year
  Sex: Female

DRUGS (7)
  1. VANCOMYCIN HYDROCHLORIDE [Suspect]
     Indication: WOUND INFECTION
     Dosage: 1 GM, TWICE A DAY
  2. FUROSEMIDE [Suspect]
     Indication: HYPERTENSION
     Dosage: 40 MG, DAILY, ORAL
     Route: 048
  3. FUROSEMIDE [Suspect]
     Indication: LEFT VENTRICULAR FAILURE
     Dosage: 40 MG, DAILY, ORAL
     Route: 048
  4. BENDROFLUMETHIAZIDE [Suspect]
     Indication: HYPERTENSION
  5. BENDROFLUMETHIAZIDE [Suspect]
     Indication: LEFT VENTRICULAR FAILURE
  6. RAMIPRIL [Concomitant]
  7. ATENOLOL [Concomitant]

REACTIONS (7)
  - CARDIAC ARREST [None]
  - HYPERKALAEMIA [None]
  - HYPOKALAEMIA [None]
  - HYPOMAGNESAEMIA [None]
  - OEDEMA PERIPHERAL [None]
  - PLEURAL EFFUSION [None]
  - VENTRICULAR TACHYCARDIA [None]
